FAERS Safety Report 19290748 (Version 3)
Quarter: 2021Q2

REPORT INFORMATION
  Report Type: Report from Study
  Country: US (occurrence: US)
  Receive Date: 20210522
  Receipt Date: 20210629
  Transmission Date: 20210717
  Serious: Yes (Other)
  Sender: FDA-Public Use
  Company Number: NVSC2021US111576

PATIENT
  Age: 79 Year
  Sex: Female

DRUGS (1)
  1. MAYZENT [Suspect]
     Active Substance: SIPONIMOD
     Indication: PRODUCT USED FOR UNKNOWN INDICATION
     Dosage: 1 DF, QD
     Route: 048
     Dates: start: 20210511

REACTIONS (7)
  - Wound [Unknown]
  - Nausea [Unknown]
  - Blood pressure systolic increased [Unknown]
  - Anxiety [Unknown]
  - Blood pressure increased [Unknown]
  - Neuropathy peripheral [Unknown]
  - Headache [Unknown]

NARRATIVE: CASE EVENT DATE: 20210604
